FAERS Safety Report 7997742 (Version 2)
Quarter: 2013Q2

REPORT INFORMATION
  Report Type: Spontaneous
  Country: US (occurrence: US)
  Receive Date: 20110620
  Receipt Date: 20130422
  Transmission Date: 20140414
  Serious: Yes (Other)
  Sender: FDA-Public Use
  Company Number: US-PFIZER INC-2011130087

PATIENT
  Age: 70 Year
  Sex: Female
  Weight: 41.27 kg

DRUGS (4)
  1. PREMARIN [Suspect]
     Indication: ATROPHIC VULVOVAGINITIS
     Dosage: 1G, 3X/WEEK
     Route: 067
     Dates: start: 1998
  2. PREMARIN [Suspect]
     Indication: URINARY TRACT INFECTION
     Dosage: UNK
  3. SYNTHROID [Concomitant]
     Indication: HYPOTHYROIDISM
     Dosage: 0.05 MG, 1X/DAY
  4. LIBRIUM [Concomitant]
     Indication: ANXIETY
     Dosage: 5 MG, AS NEEDED

REACTIONS (1)
  - Urinary tract infection [Unknown]
